FAERS Safety Report 17518818 (Version 2)
Quarter: 2020Q1

REPORT INFORMATION
  Report Type: Spontaneous
  Country: DK (occurrence: DK)
  Receive Date: 20200310
  Receipt Date: 20200323
  Transmission Date: 20200409
  Serious: Yes (Other)
  Sender: FDA-Public Use
  Company Number: DK-REGENERON PHARMACEUTICALS, INC.-2020-23818

PATIENT

DRUGS (2)
  1. EYLEA [Suspect]
     Active Substance: AFLIBERCEPT
     Indication: DRY AGE-RELATED MACULAR DEGENERATION
     Dosage: UNK
  2. EYLEA [Suspect]
     Active Substance: AFLIBERCEPT
     Indication: NEOVASCULAR AGE-RELATED MACULAR DEGENERATION
     Dosage: BOTH EYES (ONE EYE WET AND THE OTHER WITH ATROPHIC AGE-RELATED MACULAR DEGENERATION)
     Route: 031

REACTIONS (5)
  - Product use in unapproved indication [Unknown]
  - Glaucoma [Unknown]
  - Intraocular pressure increased [Unknown]
  - Off label use [Unknown]
  - Blindness [Unknown]
